FAERS Safety Report 10062920 (Version 1)
Quarter: 2014Q2

REPORT INFORMATION
  Report Type: Spontaneous
  Country: DE (occurrence: DE)
  Receive Date: 20140407
  Receipt Date: 20140407
  Transmission Date: 20141212
  Serious: Yes (Other)
  Sender: FDA-Public Use
  Company Number: DE-MYLANLABS-2014S1003549

PATIENT
  Age: 75 Year
  Sex: Female
  Weight: 73 kg

DRUGS (10)
  1. NALOXONE HYDROCHLORIDE W/TILIDINE HYDROCHLO. [Suspect]
     Indication: PAIN
     Dosage: DAILY DOSE: 2 DF DOSAGE FORM EVERY DAYS
     Route: 048
     Dates: start: 20131120, end: 20131206
  2. PANTOPRAZOL [Suspect]
     Indication: ABDOMINAL PAIN UPPER
     Dosage: DAILY DOSE: 20 MG MILLGRAM(S) EVERY DAYS
     Route: 048
     Dates: start: 20131120, end: 20131206
  3. ALLOPURINOL 300 MG TABLETS [Suspect]
     Indication: GOUT
     Dosage: DAILY DOSE: 0.5 DF DOSAGE FORM EVERY DAYS
     Route: 048
     Dates: end: 20131206
  4. BISOPROLOL TABLETS 5 MG [Concomitant]
     Indication: HEART RATE INCREASED
     Dosage: DAILY DOSE: 0.5 DF DOSAGE FORM EVERY DAYS
     Route: 048
     Dates: end: 20131206
  5. RAMIPRIL [Concomitant]
     Indication: HYPERTENSION
     Dosage: DAILY DOSE: 0.5 DF DOSAGE FORM EVERY DAYS
     Route: 048
     Dates: end: 20131206
  6. L-THYROXINE [Concomitant]
     Indication: THYROID CANCER
     Route: 048
  7. DEKRISTOL [Concomitant]
     Indication: OSTEOPOROSIS
     Dosage: DAILY DOSE: 1 DF DOSAGE FORM EVERY WEEKS
     Route: 048
  8. NOVAMINSULFON [Concomitant]
     Indication: PAIN
     Dosage: DAILY DOSE: 60 GTT DROP(S) EVERY DAYS
     Route: 048
     Dates: start: 20131120, end: 20131206
  9. MCP /00041901/ [Concomitant]
     Dosage: DAILY DOSE: 40 GTT DROP(S) EVERY DAYS
     Route: 048
     Dates: start: 20131120, end: 20131206
  10. MACROGOL [Concomitant]
     Dosage: DAILY DOSE: 1 DF DOSAGE FORM EVERY DAYS
     Route: 048
     Dates: start: 20131120, end: 20131206

REACTIONS (3)
  - Fatigue [Recovered/Resolved]
  - Hepatic enzyme increased [Recovered/Resolved]
  - Decreased appetite [Recovered/Resolved]
